FAERS Safety Report 9342108 (Version 1)
Quarter: 2013Q2

REPORT INFORMATION
  Report Type: Spontaneous
  Country: JP (occurrence: JP)
  Receive Date: 20130611
  Receipt Date: 20130611
  Transmission Date: 20140414
  Serious: Yes (Other)
  Sender: FDA-Public Use
  Company Number: JP-PFIZER INC-2013169949

PATIENT
  Age: 70 Year
  Sex: Female

DRUGS (4)
  1. CELECOX [Suspect]
     Dosage: 200 MG, 2X/DAY
     Route: 048
  2. CELECOX [Suspect]
     Dosage: 200 MG, DAILY
     Route: 048
  3. MAGNESIUM OXIDE [Concomitant]
     Dosage: UNK
     Route: 048
     Dates: start: 2013
  4. OXYCONTIN [Concomitant]
     Dosage: UNK
     Dates: start: 2013

REACTIONS (2)
  - Tremor [Unknown]
  - Muscle tightness [Unknown]
